FAERS Safety Report 6683555-6 (Version None)
Quarter: 2010Q2

REPORT INFORMATION
  Report Type: 
  Country: None (occurrence: None)
  Receive Date: 20100415
  Receipt Date: 20100406
  Transmission Date: 20101027
  Serious: Yes (Hospitalization)
  Sender: FDA-Public Use
  Company Number: US-AMGEN-QUU401938

PATIENT
  Sex: Female
  Weight: 69.5 kg

DRUGS (1)
  1. ENBREL [Suspect]
     Indication: RHEUMATOID ARTHRITIS
     Route: 058
     Dates: start: 20000223

REACTIONS (2)
  - GASTROINTESTINAL ULCER HAEMORRHAGE [None]
  - RHEUMATOID ARTHRITIS [None]
